FAERS Safety Report 16777193 (Version 1)
Quarter: 2019Q3

REPORT INFORMATION
  Report Type: Spontaneous
  Country: US (occurrence: US)
  Receive Date: 20190716
  Receipt Date: 20190716
  Transmission Date: 20191005
  Serious: No
  Sender: FDA-Public Use
  Company Number: None

PATIENT
  Age: 46 Year
  Sex: Male

DRUGS (4)
  1. GLIPIZIDE. [Concomitant]
     Active Substance: GLIPIZIDE
  2. OXYCODONE [Concomitant]
     Active Substance: OXYCODONE
  3. FUROSEMIDE. [Concomitant]
     Active Substance: FUROSEMIDE
  4. TASIGNA [Suspect]
     Active Substance: NILOTINIB
     Indication: CHRONIC MYELOID LEUKAEMIA
     Dates: start: 201807, end: 201907

REACTIONS (3)
  - Musculoskeletal chest pain [None]
  - Pain in extremity [None]
  - Skin disorder [None]

NARRATIVE: CASE EVENT DATE: 20190716
